FAERS Safety Report 9087779 (Version 1)
Quarter: 2013Q1

REPORT INFORMATION
  Report Type: Report from Study
  Country: US (occurrence: US)
  Receive Date: 20130131
  Receipt Date: 20130131
  Transmission Date: 20140127
  Serious: No
  Sender: FDA-Public Use
  Company Number: US-ABBOTT-12P-163-0999409-00

PATIENT
  Age: 48 Year
  Sex: Female
  Weight: 90.8 kg

DRUGS (10)
  1. HUMIRA [Suspect]
     Indication: PSORIASIS
     Dates: start: 2010
  2. HUMIRA [Suspect]
     Indication: PSORIATIC ARTHROPATHY
  3. HUMIRA [Suspect]
  4. SYNTHROID [Concomitant]
     Indication: GOITRE
  5. DIOVAN [Concomitant]
     Indication: HYPERTENSION
  6. HCTZ [Concomitant]
     Indication: HYPERTENSION
  7. AMITRIPTYLINE [Concomitant]
     Indication: IRRITABLE BOWEL SYNDROME
  8. PREVACID [Concomitant]
     Indication: GASTROOESOPHAGEAL REFLUX DISEASE
  9. XANAX [Concomitant]
     Indication: INSOMNIA
  10. BABY ASPIRIN [Concomitant]
     Indication: PROPHYLAXIS

REACTIONS (5)
  - Fatigue [Not Recovered/Not Resolved]
  - Bronchitis [Recovered/Resolved]
  - Gastric disorder [Recovered/Resolved]
  - Throat irritation [Not Recovered/Not Resolved]
  - Injection site pain [Not Recovered/Not Resolved]
